FAERS Safety Report 11988844 (Version 2)
Quarter: 2016Q2

REPORT INFORMATION
  Report Type: Spontaneous
  Country: US (occurrence: US)
  Receive Date: 20160202
  Receipt Date: 20160506
  Transmission Date: 20160815
  Serious: Yes (Hospitalization, Other)
  Sender: FDA-Public Use
  Company Number: US-GLAXOSMITHKLINE-US2016012917

PATIENT
  Age: 63 Year
  Sex: Female
  Weight: 149.66 kg

DRUGS (10)
  1. TANZEUM [Suspect]
     Active Substance: ALBIGLUTIDE
     Indication: TYPE 2 DIABETES MELLITUS
     Dosage: 50 MG, WE
     Route: 058
     Dates: start: 20151025, end: 20151213
  2. POTASSIUM CHLORIDE. [Concomitant]
     Active Substance: POTASSIUM CHLORIDE
  3. TYLENOL WITH CODEINE [Concomitant]
     Active Substance: ACETAMINOPHEN\CODEINE PHOSPHATE
  4. METANX [Concomitant]
     Active Substance: LEVOMEFOLATE CALCIUM\METHYLCOBALAMIN\PYRIDOXAL PHOSPHATE ANHYDROUS
  5. DIFLUCAN [Concomitant]
     Active Substance: FLUCONAZOLE
  6. DIOVAN [Concomitant]
     Active Substance: VALSARTAN
  7. TYLENOL EXTRA STRENGTH [Concomitant]
     Active Substance: ACETAMINOPHEN
  8. HYDROCHLOROTHIAZIDE + VALSARTAN [Concomitant]
  9. ATENOLOL. [Concomitant]
     Active Substance: ATENOLOL
  10. LASIX [Concomitant]
     Active Substance: FUROSEMIDE

REACTIONS (24)
  - Influenza like illness [Recovered/Resolved]
  - Haemodialysis [Unknown]
  - Hypoxia [Unknown]
  - Blood bicarbonate increased [Unknown]
  - Fatigue [Unknown]
  - Hyperkalaemia [Recovered/Resolved]
  - Tachycardia [Unknown]
  - Rales [Unknown]
  - Hypokalaemia [Unknown]
  - Hypoventilation [Recovering/Resolving]
  - Alkalosis [Unknown]
  - Listless [Unknown]
  - Neuropathy peripheral [Recovering/Resolving]
  - Renal ischaemia [Unknown]
  - Atrial fibrillation [Unknown]
  - Asthenia [Unknown]
  - Azotaemia [Unknown]
  - Fluid overload [Recovering/Resolving]
  - Hypotension [Unknown]
  - Renal failure [Recovered/Resolved]
  - Acute kidney injury [Recovered/Resolved]
  - Renal tubular necrosis [Unknown]
  - Oedema peripheral [Recovering/Resolving]
  - Oliguria [Unknown]

NARRATIVE: CASE EVENT DATE: 201512
